FAERS Safety Report 6419754-8 (Version None)
Quarter: 2009Q4

REPORT INFORMATION
  Report Type: 
  Country: None (occurrence: None)
  Receive Date: 20091029
  Receipt Date: 20091021
  Transmission Date: 20100525
  Serious: Yes (Other)
  Sender: FDA-Public Use
  Company Number: IT-JNJFOC-20090903848

PATIENT
  Age: 32 Year
  Sex: Male

DRUGS (2)
  1. REMICADE [Suspect]
     Route: 042
     Dates: end: 20090903
  2. REMICADE [Suspect]
     Indication: JUVENILE ARTHRITIS
     Route: 042
     Dates: end: 20090903

REACTIONS (10)
  - DIARRHOEA [None]
  - HYPERSENSITIVITY [None]
  - INFUSION RELATED REACTION [None]
  - NAUSEA [None]
  - PARAESTHESIA ORAL [None]
  - RASH [None]
  - RETCHING [None]
  - TACHYCARDIA [None]
  - THROAT TIGHTNESS [None]
  - VOMITING [None]
